FAERS Safety Report 17507410 (Version 4)
Quarter: 2021Q1

REPORT INFORMATION
  Report Type: Report from Study
  Country: CN (occurrence: CN)
  Receive Date: 20200306
  Receipt Date: 20210222
  Transmission Date: 20210419
  Serious: Yes (Hospitalization)
  Sender: FDA-Public Use
  Company Number: CN-ROCHE-2560564

PATIENT
  Age: 57 Year
  Sex: Male
  Weight: 75 kg

DRUGS (6)
  1. DIMETHICONE. [Concomitant]
     Active Substance: DIMETHICONE
     Dates: start: 20200227, end: 20200227
  2. POLYENE PHOSPHATIDYLCHOLINE [Concomitant]
     Active Substance: PHOSPHOLIPID
     Dates: start: 20191204, end: 202002
  3. POLYETHYLENE GLYCOL ELECTROLYTES [Concomitant]
     Dates: start: 20200227, end: 20200227
  4. COMBIZYM [ASPERGILLUS ORYZAE ENZYME;PANCREATIN] [Concomitant]
     Active Substance: ASPERGILLUS FLAVUS VAR. ORYZAE\PANCRELIPASE
     Dates: start: 20200229, end: 2020
  5. ATEZOLIZUMAB. [Suspect]
     Active Substance: ATEZOLIZUMAB
     Indication: NON-SMALL CELL LUNG CANCER
     Dosage: DATE OF LAST DOSE PRIOR TO SAE;06/FEB/2020
     Route: 042
     Dates: start: 20190711
  6. CLOSTRIDIUM BUTYRICUM [Concomitant]
     Active Substance: CLOSTRIDIUM BUTYRICUM SPORES STRAIN M-55
     Dates: start: 20200229, end: 2020

REACTIONS (1)
  - Abdominal distension [Recovered/Resolved]

NARRATIVE: CASE EVENT DATE: 20200219
